FAERS Safety Report 15109824 (Version 2)
Quarter: 2018Q3

REPORT INFORMATION
  Report Type: Spontaneous
  Country: KZ (occurrence: KZ)
  Receive Date: 20180705
  Receipt Date: 20180713
  Transmission Date: 20181010
  Serious: Yes (Disabling, Other)
  Sender: FDA-Public Use
  Company Number: KZ-BAYER-2018-121152

PATIENT
  Sex: Female

DRUGS (1)
  1. BETAFERON [Suspect]
     Active Substance: INTERFERON BETA-1B
     Dosage: UNK
     Dates: start: 201101, end: 2014

REACTIONS (8)
  - Multiple sclerosis relapse [None]
  - Optic neuritis [None]
  - Secondary progressive multiple sclerosis [None]
  - Paraparesis [None]
  - Multiple sclerosis relapse [None]
  - Multiple sclerosis relapse [None]
  - Cerebellar ataxia [None]
  - Multiple sclerosis [None]

NARRATIVE: CASE EVENT DATE: 201102
